FAERS Safety Report 23472801 (Version 1)
Quarter: 2024Q1

REPORT INFORMATION
  Report Type: Report from Study
  Country: US (occurrence: US)
  Receive Date: 20240203
  Receipt Date: 20240203
  Transmission Date: 20240410
  Serious: Yes (Other)
  Sender: FDA-Public Use
  Company Number: US-ABBVIE-5613837

PATIENT
  Sex: Female

DRUGS (1)
  1. HUMIRA [Suspect]
     Active Substance: ADALIMUMAB
     Indication: Psoriatic arthropathy
     Dosage: FORM STRENGTH: 40 MG?CITRATE FREE
     Route: 058
     Dates: start: 20230803

REACTIONS (4)
  - Joint injury [Recovering/Resolving]
  - Raynaud^s phenomenon [Recovering/Resolving]
  - Hypoaesthesia [Recovering/Resolving]
  - Fall [Recovering/Resolving]
